FAERS Safety Report 4394062-8 (Version None)
Quarter: 2004Q3

REPORT INFORMATION
  Report Type: 
  Country: None (occurrence: None)
  Receive Date: 20040709
  Receipt Date: 20040702
  Transmission Date: 20050211
  Serious: Yes (Hospitalization)
  Sender: FDA-Public Use
  Company Number: CH-MERCK-0407CHE00004

PATIENT
  Age: 34 Year
  Sex: Female
  Weight: 89 kg

DRUGS (1)
  1. VIOXX [Suspect]
     Indication: PAIN
     Route: 048
     Dates: start: 20040501, end: 20040504

REACTIONS (4)
  - FLUID RETENTION [None]
  - PLEURAL EFFUSION [None]
  - PROTEINURIA [None]
  - WEIGHT INCREASED [None]
